FAERS Safety Report 11706052 (Version 2)
Quarter: 2015Q4

REPORT INFORMATION
  Report Type: Spontaneous
  Country: CA (occurrence: CA)
  Receive Date: 20151106
  Receipt Date: 20151111
  Transmission Date: 20160304
  Serious: Yes (Disabling, Other)
  Sender: FDA-Public Use
  Company Number: CA-PFIZER INC-2015377620

PATIENT
  Age: 57 Year
  Sex: Male

DRUGS (5)
  1. ENDOCET [Suspect]
     Active Substance: ACETAMINOPHEN\OXYCODONE HYDROCHLORIDE
  2. ASPIRIN. [Concomitant]
     Active Substance: ASPIRIN
     Dosage: SOMETIMES
  3. ADVIL [Concomitant]
     Active Substance: IBUPROFEN
     Dosage: SOMETIMES
  4. CELEBREX [Suspect]
     Active Substance: CELECOXIB
     Dosage: UNK
     Dates: start: 2005
  5. PERCOCET [Suspect]
     Active Substance: ACETAMINOPHEN\OXYCODONE HYDROCHLORIDE

REACTIONS (3)
  - Limb injury [Not Recovered/Not Resolved]
  - Hypokinesia [Unknown]
  - Feeling abnormal [Not Recovered/Not Resolved]
